FAERS Safety Report 21036934 (Version 2)
Quarter: 2022Q3

REPORT INFORMATION
  Report Type: Spontaneous
  Country: PK (occurrence: PK)
  Receive Date: 20220702
  Receipt Date: 20220909
  Transmission Date: 20221027
  Serious: Yes (Hospitalization, Other)
  Sender: FDA-Public Use
  Company Number: PK-NOVARTISPH-NVSC2022PK146736

PATIENT
  Age: 24 Year
  Sex: Male

DRUGS (2)
  1. SECUKINUMAB [Suspect]
     Active Substance: SECUKINUMAB
     Indication: Juvenile idiopathic arthritis
     Dosage: 150 MG, QMO
     Route: 058
     Dates: start: 20220509, end: 20220625
  2. SECUKINUMAB [Suspect]
     Active Substance: SECUKINUMAB
     Indication: Juvenile idiopathic arthritis

REACTIONS (3)
  - Abscess limb [Recovering/Resolving]
  - Wound infection staphylococcal [Recovered/Resolved]
  - Abscess neck [Unknown]

NARRATIVE: CASE EVENT DATE: 20220609
